FAERS Safety Report 7332642-8 (Version None)
Quarter: 2011Q1

REPORT INFORMATION
  Report Type: 
  Country: None (occurrence: None)
  Receive Date: 20110304
  Receipt Date: 20110225
  Transmission Date: 20110831
  Serious: Yes (Death, Hospitalization)
  Sender: FDA-Public Use
  Company Number: DE-CELGENEUS-062-50794-10110774

PATIENT
  Age: 71 Year
  Sex: Male
  Weight: 71.9 kg

DRUGS (6)
  1. VIDAZA [Suspect]
     Route: 058
     Dates: start: 20101101
  2. ALLOPURINOL [Concomitant]
     Indication: HYPERURICAEMIA
     Dosage: 300 MILLIGRAM
     Route: 048
     Dates: start: 20100303
  3. HYDROXYCARBAMID [Concomitant]
     Indication: CHRONIC MYELOMONOCYTIC LEUKAEMIA
     Dosage: 3000 MILLIGRAM
     Route: 048
     Dates: start: 20101101
  4. VIDAZA [Suspect]
     Indication: CHRONIC MYELOMONOCYTIC LEUKAEMIA
     Dosage: 140 MILLIGRAM
     Route: 058
     Dates: start: 20101025, end: 20101029
  5. GRANISETRON HCL [Concomitant]
     Indication: PROPHYLAXIS OF NAUSEA AND VOMITING
     Route: 048
     Dates: start: 20100927
  6. MACROGOL [Concomitant]
     Dosage: 26 GRAM
     Route: 048
     Dates: start: 20100928

REACTIONS (5)
  - CHRONIC MYELOMONOCYTIC LEUKAEMIA [None]
  - ACUTE MYELOID LEUKAEMIA [None]
  - GENERAL PHYSICAL HEALTH DETERIORATION [None]
  - CHEST PAIN [None]
  - LEUKOCYTOSIS [None]
